FAERS Safety Report 24855286 (Version 1)
Quarter: 2025Q1

REPORT INFORMATION
  Report Type: Spontaneous
  Country: CN (occurrence: CN)
  Receive Date: 20250117
  Receipt Date: 20250117
  Transmission Date: 20250408
  Serious: Yes (Hospitalization, Other)
  Sender: ALEXION PHARMACEUTICALS
  Company Number: CN-sdluye-SDLY2025010115

PATIENT
  Age: 23 Year
  Weight: 75 kg

DRUGS (2)
  1. SEROQUEL [Suspect]
     Active Substance: QUETIAPINE FUMARATE
     Indication: Symptomatic treatment
     Dosage: 25 MILLIGRAM, BID
  2. SEROQUEL [Suspect]
     Active Substance: QUETIAPINE FUMARATE
     Dosage: 25 MILLIGRAM, BID

REACTIONS (2)
  - Rash [Recovering/Resolving]
  - Hyperpyrexia [Recovering/Resolving]
